FAERS Safety Report 12852065 (Version 1)
Quarter: 2016Q4

REPORT INFORMATION
  Report Type: Spontaneous
  Country: US (occurrence: US)
  Receive Date: 20161017
  Receipt Date: 20161017
  Transmission Date: 20170207
  Serious: No
  Sender: FDA-Public Use
  Company Number: US-ASTRAZENECA-2016SF05259

PATIENT
  Age: 894 Month
  Sex: Female
  Weight: 80.7 kg

DRUGS (5)
  1. BYDUREON [Suspect]
     Active Substance: EXENATIDE
     Indication: TYPE 2 DIABETES MELLITUS
     Route: 058
     Dates: start: 201607
  2. LANTUS [Concomitant]
     Active Substance: INSULIN GLARGINE
     Dosage: 52 UNIT, DAILY
     Dates: start: 201607
  3. NOVOLOG [Concomitant]
     Active Substance: INSULIN ASPART
     Dosage: 10 UNIT, BEFORE MEALS
     Dates: start: 20160929
  4. MEDICATION FOR BLOOD PRESSURE [Concomitant]
     Indication: BLOOD PRESSURE ABNORMAL
  5. BYDUREON [Suspect]
     Active Substance: EXENATIDE
     Indication: TYPE 2 DIABETES MELLITUS
     Route: 058
     Dates: start: 201608

REACTIONS (3)
  - Blood glucose increased [Unknown]
  - Medication error [Unknown]
  - Diabetes mellitus inadequate control [Unknown]

NARRATIVE: CASE EVENT DATE: 201608
